FAERS Safety Report 25728765 (Version 1)
Quarter: 2025Q3

REPORT INFORMATION
  Report Type: Spontaneous
  Country: MX (occurrence: MX)
  Receive Date: 20250826
  Receipt Date: 20250826
  Transmission Date: 20251020
  Serious: Yes (Hospitalization)
  Sender: SERVIER
  Company Number: MX-SERVIER-S25011935

PATIENT

DRUGS (2)
  1. PEGASPARGASE [Suspect]
     Active Substance: PEGASPARGASE
     Indication: Acute lymphocytic leukaemia
     Route: 030
     Dates: start: 20250717, end: 20250717
  2. PEGASPARGASE [Suspect]
     Active Substance: PEGASPARGASE
     Route: 030
     Dates: start: 20250731, end: 20250731

REACTIONS (5)
  - Venous thrombosis [Unknown]
  - Hyponatraemia [Unknown]
  - Hypofibrinogenaemia [Unknown]
  - Transaminases increased [Unknown]
  - Headache [Recovered/Resolved]

NARRATIVE: CASE EVENT DATE: 20250804
